FAERS Safety Report 19455319 (Version 2)
Quarter: 2021Q3

REPORT INFORMATION
  Report Type: Spontaneous
  Country: IT (occurrence: IT)
  Receive Date: 20210623
  Receipt Date: 20210809
  Transmission Date: 20211014
  Serious: Yes (Other)
  Sender: FDA-Public Use
  Company Number: NVSC2021IT117630

PATIENT
  Age: 73 Year
  Sex: Female

DRUGS (2)
  1. PALBOCICLIB [Suspect]
     Active Substance: PALBOCICLIB
     Indication: BREAST CANCER METASTATIC
     Dosage: 125 MG,QD
     Route: 065
     Dates: start: 20210324, end: 20210328
  2. LETROZOLO SANDOZ [Suspect]
     Active Substance: LETROZOLE
     Indication: CANCER HORMONAL THERAPY
     Dosage: 2.5 MG,QD
     Route: 048

REACTIONS (2)
  - Glomerular filtration rate decreased [Recovered/Resolved]
  - Acute kidney injury [Recovered/Resolved]

NARRATIVE: CASE EVENT DATE: 20210329
